FAERS Safety Report 8844518 (Version 1)
Quarter: 2012Q4

REPORT INFORMATION
  Report Type: Spontaneous
  Country: US (occurrence: None)
  Receive Date: 20121016
  Receipt Date: 20121016
  Transmission Date: 20130627
  Serious: Yes (Hospitalization)
  Sender: FDA-Public Use
  Company Number: None

PATIENT
  Age: 86 Year
  Sex: Female
  Weight: 83.2 kg

DRUGS (11)
  1. PLAVIX [Suspect]
     Indication: CORONARY ARTERY DISEASE
     Dosage: 75MG DAILY PO
     Route: 048
  2. BC [Suspect]
     Dosage: ARTHRITIS
     Route: 048
  3. ALEVE [Suspect]
     Route: 048
  4. PROTONIX [Concomitant]
  5. ZOCOR [Concomitant]
  6. METOPROLOL [Concomitant]
  7. DETROL LA [Concomitant]
  8. NORVASC [Concomitant]
  9. SYNTHROID [Concomitant]
  10. ARICEPT [Concomitant]
  11. ZYLOPRIM [Concomitant]

REACTIONS (3)
  - Gastrointestinal haemorrhage [None]
  - Anaemia [None]
  - Ulcer haemorrhage [None]
